FAERS Safety Report 7256881-X (Version None)
Quarter: 2011Q1

REPORT INFORMATION
  Report Type: 
  Country: None (occurrence: None)
  Receive Date: 20110129
  Receipt Date: 20100621
  Transmission Date: 20110831
  Serious: No
  Sender: FDA-Public Use
  Company Number: US-ABBOTT-10P-163-0652560-00

PATIENT
  Age: 71 Year
  Sex: Female

DRUGS (3)
  1. ARTHROTEC [Concomitant]
     Indication: ARTHRALGIA
  2. HUMIRA [Suspect]
     Indication: PSORIASIS
     Dates: start: 20100322
  3. BLOOD PRESSURE MEDICATION [Concomitant]
     Indication: PRODUCT USED FOR UNKNOWN INDICATION

REACTIONS (2)
  - JOINT STIFFNESS [None]
  - ARTHRALGIA [None]
